FAERS Safety Report 8022187-4 (Version None)
Quarter: 2012Q1

REPORT INFORMATION
  Report Type: 
  Country: None (occurrence: None)
  Receive Date: 20120104
  Receipt Date: 20111230
  Transmission Date: 20120608
  Serious: Yes (Death, Hospitalization, Other)
  Sender: FDA-Public Use
  Company Number: FR-ABBOTT-05P-056-0295432-00

PATIENT
  Age: 20 Year
  Sex: Female

DRUGS (5)
  1. DEPAKENE [Suspect]
     Dosage: DOSE DECREASED
     Dates: start: 20050124, end: 20050204
  2. URBANYL [Suspect]
     Indication: MYOCLONIC EPILEPSY
     Route: 048
     Dates: start: 20041030, end: 20050204
  3. GESTODENE AND ETHINYL ESTRADIOL [Concomitant]
     Indication: ORAL CONTRACEPTION
     Route: 048
     Dates: start: 20040101
  4. DEPAKENE [Suspect]
     Indication: MYOCLONIC EPILEPSY
     Route: 048
     Dates: start: 20041030, end: 20050123
  5. GESTODENE AND ETHINYL ESTRADIOL [Suspect]
     Indication: CONTRACEPTION
     Dosage: 1 UNIT DAILY
     Route: 048
     Dates: start: 20040101

REACTIONS (15)
  - DRUG SCREEN POSITIVE [None]
  - HEPATIC FAILURE [None]
  - NAUSEA [None]
  - DIARRHOEA [None]
  - PROTHROMBIN TIME PROLONGED [None]
  - HEPATITIS [None]
  - HEADACHE [None]
  - INFLUENZA [None]
  - HEPATITIS FULMINANT [None]
  - HEPATIC NECROSIS [None]
  - COUGH [None]
  - BLOOD BILIRUBIN INCREASED [None]
  - CONVULSION [None]
  - HAEMOGLOBIN DECREASED [None]
  - HEPATIC STEATOSIS [None]
